FAERS Safety Report 9418039 (Version 2)
Quarter: 2013Q4

REPORT INFORMATION
  Report Type: Spontaneous
  Country: GB (occurrence: GB)
  Receive Date: 20130724
  Receipt Date: 20131106
  Transmission Date: 20140711
  Serious: Yes (Other)
  Sender: FDA-Public Use
  Company Number: GB-ASTRAZENECA-2013SE52809

PATIENT
  Age: 62 Year
  Sex: Male

DRUGS (3)
  1. LOSEC [Suspect]
     Indication: PROPHYLAXIS
     Route: 048
     Dates: start: 20130404, end: 20130531
  2. DICLOFENAC [Suspect]
     Indication: BACK PAIN
     Route: 048
     Dates: start: 20130404, end: 20130531
  3. VITAMIN C [Concomitant]

REACTIONS (1)
  - Liver function test abnormal [Recovering/Resolving]
